FAERS Safety Report 8913915 (Version 1)
Quarter: 2012Q4

REPORT INFORMATION
  Report Type: 
  Country: DE (occurrence: DE)
  Receive Date: 20121119
  Receipt Date: 20121119
  Transmission Date: 20130627
  Serious: Yes (Hospitalization, Other)
  Sender: FDA-Public Use
  Company Number: DE-ELI_LILLY_AND_COMPANY-DE201208003579

PATIENT
  Age: 56 Year
  Sex: Male

DRUGS (2)
  1. HUMALOG LISPRO [Suspect]
     Indication: TYPE 1 DIABETES MELLITUS
     Dosage: 1 DF, prn
     Route: 058
     Dates: start: 1984
  2. HUMINSULIN NPH [Suspect]
     Indication: TYPE 1 DIABETES MELLITUS
     Dosage: UNK, other

REACTIONS (7)
  - Hospitalisation [Unknown]
  - Hypoglycaemic coma [Unknown]
  - Blood glucose decreased [Unknown]
  - Incorrect dose administered [Unknown]
  - Neuralgia [Unknown]
  - Diabetic retinopathy [Unknown]
  - Sexual dysfunction [Unknown]
